FAERS Safety Report 24290695 (Version 1)
Quarter: 2024Q3

REPORT INFORMATION
  Report Type: Spontaneous
  Country: TR (occurrence: TR)
  Receive Date: 20240906
  Receipt Date: 20240906
  Transmission Date: 20241017
  Serious: Yes (Hospitalization, Other)
  Sender: AMGEN
  Company Number: TR-AMGEN-TURSP2024172419

PATIENT
  Sex: Male

DRUGS (11)
  1. SODIUM PHENYLBUTYRATE [Suspect]
     Active Substance: SODIUM PHENYLBUTYRATE
     Indication: Carbamoyl phosphate synthetase deficiency
     Dosage: UNK, 218-288 MG/KG/DAY, QID
     Route: 065
  2. DEXTROSE [Concomitant]
     Active Substance: DEXTROSE\DEXTROSE MONOHYDRATE
     Dosage: UNK
     Route: 065
  3. CARGLUMIC ACID [Concomitant]
     Active Substance: CARGLUMIC ACID
     Dosage: UNK, 110-130 MG/KG/DAY, QID
     Route: 065
  4. SODIUM BENZOATE;SODIUM PHENYLACETATE [Concomitant]
     Dosage: UNK
     Route: 065
  5. ARGININE [Concomitant]
     Active Substance: ARGININE
     Dosage: UNK, 109-146 MG/KG/DAY, QID
     Route: 065
  6. SODIUM BENZOATE [Concomitant]
     Active Substance: SODIUM BENZOATE
     Dosage: UNK 109-288 MG/KG/DAY, QID
     Route: 065
  7. DEXTROSE [Concomitant]
     Active Substance: DEXTROSE\DEXTROSE MONOHYDRATE
     Dosage: 10 MILLIGRAM/KILOGRAM/ MIN
  8. AMINO ACIDS, SOURCE UNSPECIFIED [Concomitant]
     Active Substance: AMINO ACIDS, SOURCE UNSPECIFIED
     Dosage: 0.5 GRAM/ KILOGRAM, QD
  9. AMINO ACIDS, SOURCE UNSPECIFIED [Concomitant]
     Active Substance: AMINO ACIDS, SOURCE UNSPECIFIED
     Dosage: 1.7 GRAM/ KILOGRAM, QD
  10. MILUPA BASIC P [Concomitant]
     Dosage: UNK
     Route: 065
  11. Nutricia [Concomitant]
     Dosage: UNK
     Route: 065

REACTIONS (13)
  - Urinary tract infection [Unknown]
  - Diarrhoea [Unknown]
  - Ammonia increased [Unknown]
  - Blood parathyroid hormone increased [Unknown]
  - Aspartate aminotransferase increased [Unknown]
  - Blood albumin decreased [Unknown]
  - Prothrombin time prolonged [Unknown]
  - Alanine aminotransferase increased [Unknown]
  - Activated partial thromboplastin time prolonged [Unknown]
  - Lethargy [Unknown]
  - Vitamin D decreased [Unknown]
  - Protein total decreased [Unknown]
  - Blood alkaline phosphatase increased [Unknown]
